FAERS Safety Report 5256422-2 (Version None)
Quarter: 2007Q1

REPORT INFORMATION
  Report Type: 
  Country: None (occurrence: None)
  Receive Date: 20070306
  Receipt Date: 20070219
  Transmission Date: 20070707
  Serious: Yes (Other)
  Sender: FDA-Public Use
  Company Number: HQWYE904130JAN07

PATIENT
  Sex: Male

DRUGS (1)
  1. ENBREL [Suspect]
     Indication: PSORIASIS
     Route: 058
     Dates: start: 20060928, end: 20070123

REACTIONS (3)
  - MYELODYSPLASTIC SYNDROME [None]
  - POLYCYTHAEMIA [None]
  - WHITE BLOOD CELL COUNT INCREASED [None]
